FAERS Safety Report 9895217 (Version 1)
Quarter: 2014Q1

REPORT INFORMATION
  Report Type: Spontaneous
  Country: US (occurrence: US)
  Receive Date: 20140213
  Receipt Date: 20140213
  Transmission Date: 20141002
  Serious: No
  Sender: FDA-Public Use
  Company Number: US-BRISTOL-MYERS SQUIBB COMPANY-19361013

PATIENT
  Age: 38 Year
  Sex: Female
  Weight: 125 kg

DRUGS (5)
  1. ABATACEPT SUBQ INJECTION 125MG/ML [Suspect]
     Indication: RHEUMATOID ARTHRITIS
     Dosage: 1DF:125MG/ML
     Route: 058
  2. IBUPROFEN [Concomitant]
     Dosage: CAPS
  3. METHOTREXATE [Concomitant]
     Dosage: TAB
  4. PREDNISONE [Concomitant]
     Dosage: TAB
  5. FOLIC ACID [Concomitant]
     Dosage: TAB

REACTIONS (1)
  - Drug ineffective [Unknown]
